FAERS Safety Report 22114413 (Version 1)
Quarter: 2023Q1

REPORT INFORMATION
  Report Type: Spontaneous
  Country: JP (occurrence: JP)
  Receive Date: 20230320
  Receipt Date: 20230320
  Transmission Date: 20230418
  Serious: Yes (Hospitalization)
  Sender: FDA-Public Use
  Company Number: JP-002147023-NVSC2023JP060748

PATIENT
  Age: 52 Year
  Sex: Male

DRUGS (2)
  1. NEORAL [Suspect]
     Active Substance: CYCLOSPORINE
     Indication: Polymyositis
     Dosage: 300 MG
     Route: 065
  2. PREDNISOLONE [Suspect]
     Active Substance: PREDNISOLONE
     Indication: Polymyositis
     Dosage: 5 MG
     Route: 065

REACTIONS (2)
  - Asymptomatic COVID-19 [Unknown]
  - Product use in unapproved indication [Unknown]
